FAERS Safety Report 5588170-3 (Version None)
Quarter: 2008Q1

REPORT INFORMATION
  Report Type: 
  Country: None (occurrence: None)
  Receive Date: 20080109
  Receipt Date: 20080109
  Transmission Date: 20080703
  Serious: Yes (Other)
  Sender: FDA-Public Use
  Company Number: None

PATIENT
  Sex: Male

DRUGS (3)
  1. LIPITOR [Suspect]
     Indication: BLOOD CHOLESTEROL
     Dosage: 10 MG  DAILY  PO
     Route: 048
     Dates: start: 20070401, end: 20071020
  2. TYLENOL [Concomitant]
  3. ALEVE [Concomitant]

REACTIONS (10)
  - BURNING SENSATION [None]
  - GAIT DISTURBANCE [None]
  - HYPERGLYCAEMIA [None]
  - INFLAMMATION [None]
  - LABORATORY TEST ABNORMAL [None]
  - MUSCLE ATROPHY [None]
  - MUSCLE SPASMS [None]
  - MUSCULAR WEAKNESS [None]
  - MYALGIA [None]
  - PARAESTHESIA [None]
